FAERS Safety Report 14683132 (Version 3)
Quarter: 2018Q2

REPORT INFORMATION
  Report Type: Report from Study
  Country: US (occurrence: US)
  Receive Date: 20180327
  Receipt Date: 20180424
  Transmission Date: 20180711
  Serious: No
  Sender: FDA-Public Use
  Company Number: PHEH2018US011598

PATIENT
  Sex: Female

DRUGS (1)
  1. ILARIS [Suspect]
     Active Substance: CANAKINUMAB
     Indication: CRYOPYRIN ASSOCIATED PERIODIC SYNDROME
     Dosage: 150 MG, QMO
     Route: 058

REACTIONS (7)
  - Injection site erythema [Unknown]
  - Pruritus [Unknown]
  - Erythema [Unknown]
  - Injection site pruritus [Unknown]
  - Rash papular [Unknown]
  - Injection site hypersensitivity [Unknown]
  - Injection site rash [Unknown]
